FAERS Safety Report 9744427 (Version 2)
Quarter: 2013Q4

REPORT INFORMATION
  Report Type: Spontaneous
  Country: DE (occurrence: DE)
  Receive Date: 20131210
  Receipt Date: 20131212
  Transmission Date: 20140711
  Serious: Yes (Death)
  Sender: FDA-Public Use
  Company Number: DE-UCBSA-105254

PATIENT
  Sex: Female

DRUGS (2)
  1. LEGANTO [Suspect]
     Indication: RESTLESS LEGS SYNDROME
     Route: 062
  2. BETAFERON [Concomitant]
     Dates: start: 201211

REACTIONS (1)
  - Death [Fatal]
